FAERS Safety Report 7563121-0 (Version None)
Quarter: 2011Q2

REPORT INFORMATION
  Report Type: 
  Country: None (occurrence: None)
  Receive Date: 20110615
  Receipt Date: 20110608
  Transmission Date: 20111010
  Serious: Yes (Hospitalization, Other)
  Sender: FDA-Public Use
  Company Number: ASA_01217_2010

PATIENT
  Sex: Male
  Weight: 108.8633 kg

DRUGS (6)
  1. FLOMAX [Concomitant]
  2. ZOLOFT [Concomitant]
  3. NORVASC [Concomitant]
  4. METOCLOPRAMIDE [Suspect]
     Indication: NAUSEA
     Dosage: DF ORAL
     Route: 048
     Dates: start: 20050101, end: 20090101
  5. SPIRONOLACTONE [Suspect]
     Indication: PRODUCT USED FOR UNKNOWN INDICATION
     Dosage: DF ORAL
     Route: 048
  6. LANTUS [Concomitant]

REACTIONS (23)
  - URINE ODOUR ABNORMAL [None]
  - UPPER RESPIRATORY TRACT INFECTION [None]
  - RED BLOOD CELL SEDIMENTATION RATE INCREASED [None]
  - NAUSEA [None]
  - ASTHENIA [None]
  - BRONCHITIS [None]
  - HYPOTENSION [None]
  - BREAST TENDERNESS [None]
  - BLOOD GLUCOSE INCREASED [None]
  - GLOMERULAR FILTRATION RATE DECREASED [None]
  - TREMOR [None]
  - ECONOMIC PROBLEM [None]
  - INJURY [None]
  - BACK PAIN [None]
  - EYE PAIN [None]
  - HEADACHE [None]
  - BLOOD CREATININE INCREASED [None]
  - NECK PAIN [None]
  - GLYCOSYLATED HAEMOGLOBIN INCREASED [None]
  - CHEST PAIN [None]
  - TARDIVE DYSKINESIA [None]
  - EMOTIONAL DISORDER [None]
  - VOMITING [None]
